FAERS Safety Report 6255583-6 (Version None)
Quarter: 2009Q3

REPORT INFORMATION
  Report Type: 
  Country: None (occurrence: None)
  Receive Date: 20090702
  Receipt Date: 20090618
  Transmission Date: 20100115
  Serious: Yes (Hospitalization)
  Sender: FDA-Public Use
  Company Number: TR-GENENTECH-285782

PATIENT
  Sex: Male
  Weight: 84 kg

DRUGS (1)
  1. XOLAIR [Suspect]
     Indication: ASTHMA
     Dosage: 225 A?G, Q15D
     Route: 058
     Dates: start: 20090401, end: 20090604

REACTIONS (14)
  - CARDIAC ENZYMES INCREASED [None]
  - CHEST PAIN [None]
  - DYSPNOEA [None]
  - HEPATITIS [None]
  - LEUKOCYTOSIS [None]
  - MALAISE [None]
  - MYALGIA [None]
  - MYOCARDITIS [None]
  - NEUTROPHIL COUNT INCREASED [None]
  - PNEUMONIA [None]
  - PYREXIA [None]
  - RALES [None]
  - SEPSIS [None]
  - TACHYCARDIA [None]
